FAERS Safety Report 8566856-6 (Version None)
Quarter: 2012Q3

REPORT INFORMATION
  Report Type: 
  Country: None (occurrence: None)
  Receive Date: 20120803
  Receipt Date: 20110906
  Transmission Date: 20120928
  Serious: No
  Sender: FDA-Public Use
  Company Number: US-ABBOTT-11P-163-0852607-00

PATIENT
  Sex: Male

DRUGS (1)
  1. NIASPAN [Suspect]
     Indication: BLOOD CHOLESTEROL INCREASED
     Dates: start: 20100601, end: 20110801

REACTIONS (4)
  - PARAESTHESIA [None]
  - FLUSHING [None]
  - MEDICATION RESIDUE [None]
  - LOSS OF CONSCIOUSNESS [None]
